FAERS Safety Report 9685456 (Version 1)
Quarter: 2013Q4

REPORT INFORMATION
  Report Type: Not Available
  Country: CH (occurrence: CH)
  Receive Date: 20131113
  Receipt Date: 20131113
  Transmission Date: 20140711
  Serious: Yes (Hospitalization)
  Sender: FDA-Public Use
  Company Number: CH-ASTELLAS-2013EU009704

PATIENT
  Age: 69 Year
  Sex: Male

DRUGS (11)
  1. PROGRAF [Suspect]
     Dosage: 1 MG, OTHER
     Route: 048
  2. CELLCEPT /01275102/ [Suspect]
     Dosage: 250 MG, BID
     Route: 048
  3. PREDNISONE [Suspect]
     Dosage: 5 MG, OTHER
     Route: 048
  4. ZANIDIP [Suspect]
     Dosage: 10 MG, TID
     Route: 048
  5. FOLIC ACID [Concomitant]
     Dosage: UNK
     Route: 048
  6. ASPIRIN CARDIO [Concomitant]
     Dosage: UNKNOWN/D
     Route: 048
  7. BELOC                              /01739801/ [Concomitant]
     Dosage: UNK
     Route: 048
  8. CALCIUM D3 SANDOZ [Concomitant]
     Dosage: UNK
     Route: 048
  9. CARDURA CR [Concomitant]
     Dosage: UNK
     Route: 048
  10. ARANESP [Concomitant]
     Dosage: UNK
     Route: 065
  11. VI-DE 3 [Concomitant]
     Dosage: UNK
     Route: 048

REACTIONS (1)
  - Eosinophilic pneumonia [Recovering/Resolving]
